FAERS Safety Report 9323608 (Version 2)
Quarter: 2013Q2

REPORT INFORMATION
  Report Type: Report from Study
  Country: DK (occurrence: DK)
  Receive Date: 20130603
  Receipt Date: 20130605
  Transmission Date: 20140414
  Serious: Yes (Death, Hospitalization)
  Sender: FDA-Public Use
  Company Number: DK-UCBSA-087271

PATIENT
  Sex: Male

DRUGS (1)
  1. CIMZIA [Suspect]
     Indication: RHEUMATOID ARTHRITIS
     Dosage: PATIENT RECEIVED ONLY FIRST DOSE
     Dates: start: 20130116, end: 2013

REACTIONS (1)
  - Pneumonia [Fatal]
